FAERS Safety Report 4913699-8 (Version None)
Quarter: 2006Q1

REPORT INFORMATION
  Report Type: 
  Country: None (occurrence: None)
  Receive Date: 20060216
  Receipt Date: 20051228
  Transmission Date: 20060701
  Serious: Yes (Other)
  Sender: FDA-Public Use
  Company Number: PT-SP-2006-00343

PATIENT
  Age: 53 Year
  Sex: Male

DRUGS (1)
  1. IMMUCYST [Suspect]
     Indication: BLADDER CANCER
     Route: 043
     Dates: start: 20051213, end: 20051223

REACTIONS (4)
  - HAEMATURIA [None]
  - NAUSEA [None]
  - URINARY RETENTION [None]
  - VOMITING [None]
